FAERS Safety Report 5525870-5 (Version None)
Quarter: 2007Q4

REPORT INFORMATION
  Report Type: 
  Country: None (occurrence: None)
  Receive Date: 20071126
  Receipt Date: 20071114
  Transmission Date: 20080405
  Serious: Yes (Congenital Anomaly, Other)
  Sender: FDA-Public Use
  Company Number: FR-PFIZER INC-2007089389

PATIENT
  Sex: Male

DRUGS (3)
  1. DOSTINEX [Suspect]
     Dosage: FREQ:WEEKLY
     Dates: start: 20050301, end: 20050613
  2. ELEVIT VITAMINE B9 [Concomitant]
  3. ZYMAFLUOR [Concomitant]

REACTIONS (5)
  - ATRIAL SEPTAL DEFECT [None]
  - DRUG EXPOSURE DURING PREGNANCY [None]
  - PREMATURE BABY [None]
  - TRISOMY 21 [None]
  - VENTRICULAR SEPTAL DEFECT [None]
